FAERS Safety Report 24380929 (Version 2)
Quarter: 2025Q1

REPORT INFORMATION
  Report Type: Spontaneous
  Country: US (occurrence: US)
  Receive Date: 20240930
  Receipt Date: 20250108
  Transmission Date: 20250409
  Serious: Yes (Other)
  Sender: MADRIGAL PHARMACEUTICALS
  Company Number: US-MADRIGAL PHARMACEUTICALS, INC-2024REZ1527

PATIENT

DRUGS (12)
  1. REZDIFFRA [Suspect]
     Active Substance: RESMETIROM
     Indication: Metabolic dysfunction-associated steatohepatitis
     Dosage: 80 MILLIGRAM, QD
     Route: 048
     Dates: start: 20240823, end: 20240902
  2. ACTIGALL [Concomitant]
     Active Substance: URSODIOL
     Dosage: 300 MILLIGRAM, TID
     Route: 048
  3. XANAX [Concomitant]
     Active Substance: ALPRAZOLAM
     Route: 048
  4. GAVISCON [Concomitant]
     Active Substance: ALUMINUM HYDROXIDE\MAGNESIUM CARBONATE
     Route: 048
  5. SINEQUAN [Concomitant]
     Active Substance: DOXEPIN HYDROCHLORIDE
     Route: 048
  6. PROZAC [Concomitant]
     Active Substance: FLUOXETINE HYDROCHLORIDE
     Dosage: 20 MILLIGRAM, QD
  7. ANTIVERT [Concomitant]
     Active Substance: MECLIZINE HYDROCHLORIDE
     Indication: Dizziness
     Dosage: 25 MILLIGRAM, BID
     Route: 048
  8. REGLAN [Concomitant]
     Active Substance: METOCLOPRAMIDE HYDROCHLORIDE
     Dosage: 0.5 DOSAGE FORM, QD
     Route: 048
  9. REMERON [Concomitant]
     Active Substance: MIRTAZAPINE
     Dosage: 15 MILLIGRAM, QD
  10. PRILOSEC [Concomitant]
     Active Substance: OMEPRAZOLE MAGNESIUM
     Dosage: 2 DOSAGE FORM, QD
     Route: 048
  11. ZOFRAN [Concomitant]
     Active Substance: ONDANSETRON HYDROCHLORIDE
     Route: 048
  12. DESYREL [Concomitant]
     Active Substance: TRAZODONE HYDROCHLORIDE
     Dosage: 100 MILLIGRAM, QD
     Route: 048

REACTIONS (4)
  - Abdominal pain [Recovered/Resolved]
  - Gallbladder disorder [Unknown]
  - Condition aggravated [Unknown]
  - Vomiting [Unknown]

NARRATIVE: CASE EVENT DATE: 20240801
